FAERS Safety Report 11142394 (Version 4)
Quarter: 2016Q1

REPORT INFORMATION
  Report Type: Report from Study
  Country: AR (occurrence: AR)
  Receive Date: 20150527
  Receipt Date: 20160226
  Transmission Date: 20160525
  Serious: Yes (Death, Hospitalization, Other)
  Sender: FDA-Public Use
  Company Number: PHHY2015AR060397

PATIENT
  Age: 78 Year
  Sex: Male

DRUGS (5)
  1. ONBREZ BREEZHALER [Suspect]
     Active Substance: INDACATEROL
     Indication: LUNG DISORDER
     Dosage: 1 DF, QD
     Route: 065
     Dates: start: 20150514
  2. ONBREZ BREEZHALER [Suspect]
     Active Substance: INDACATEROL
     Indication: DYSPNOEA
  3. ULTIBRO BREEZHALER [Suspect]
     Active Substance: GLYCOPYRRONIUM\INDACATEROL
     Indication: CHRONIC OBSTRUCTIVE PULMONARY DISEASE
     Dosage: 1 DF, QD
     Route: 065
  4. ONBREZ BREEZHALER [Suspect]
     Active Substance: INDACATEROL
     Indication: CHRONIC OBSTRUCTIVE PULMONARY DISEASE
     Dosage: 300 UG, QD
     Route: 055
     Dates: start: 201409
  5. SEEBRI BREEZHALER [Suspect]
     Active Substance: GLYCOPYRROLATE
     Indication: CHRONIC OBSTRUCTIVE PULMONARY DISEASE
     Dosage: 50 OT, QD (1 DAILY)
     Route: 065

REACTIONS (10)
  - Cardiac disorder [Recovering/Resolving]
  - Renal impairment [Recovering/Resolving]
  - Death [Fatal]
  - Generalised oedema [Recovering/Resolving]
  - Pulmonary function test abnormal [Recovering/Resolving]
  - Malaise [Unknown]
  - Asthenia [Recovering/Resolving]
  - Myeloproliferative neoplasm [Recovering/Resolving]
  - Atrial fibrillation [Recovering/Resolving]
  - Myelofibrosis [Recovering/Resolving]

NARRATIVE: CASE EVENT DATE: 20150506
